FAERS Safety Report 6021538-X (Version None)
Quarter: 2008Q4

REPORT INFORMATION
  Report Type: 
  Country: None (occurrence: None)
  Receive Date: 20081222
  Receipt Date: 20081028
  Transmission Date: 20090506
  Serious: No
  Sender: FDA-Public Use
  Company Number: SPV1-2008-02390

PATIENT
  Age: 6 Year
  Sex: Female

DRUGS (2)
  1. VYVANSE [Suspect]
     Dosage: 20 MG, 1X/DAY;QD;ORAL
     Route: 048
     Dates: start: 20081028
  2. CLONIDINE [Concomitant]

REACTIONS (1)
  - VOMITING [None]
